FAERS Safety Report 16664115 (Version 1)
Quarter: 2019Q3

REPORT INFORMATION
  Report Type: Spontaneous
  Country: GB (occurrence: GB)
  Receive Date: 20190802
  Receipt Date: 20190802
  Transmission Date: 20191004
  Serious: Yes (Other)
  Sender: FDA-Public Use
  Company Number: GB-MYLANLABS-2019M1072465

PATIENT
  Age: 62 Year
  Sex: Male

DRUGS (1)
  1. ATORVASTATIN [Suspect]
     Active Substance: ATORVASTATIN
     Indication: CARDIAC AMYLOIDOSIS
     Dosage: 20 MG, ONCE A DAY

REACTIONS (9)
  - Depression [Unknown]
  - Fatigue [Unknown]
  - Hypertension [Unknown]
  - Weight decreased [Unknown]
  - Product use in unapproved indication [Unknown]
  - Cardiac amyloidosis [Unknown]
  - Condition aggravated [Unknown]
  - Dyspnoea [Unknown]
  - Oedema [Unknown]
